FAERS Safety Report 13616670 (Version 1)
Quarter: 2017Q2

REPORT INFORMATION
  Report Type: Spontaneous
  Country: US (occurrence: US)
  Receive Date: 20170606
  Receipt Date: 20170606
  Transmission Date: 20170830
  Serious: No
  Sender: FDA-Public Use
  Company Number: US-SA-2016SA108303

PATIENT
  Age: 74 Year
  Sex: Female

DRUGS (7)
  1. TOUJEO [Concomitant]
     Active Substance: INSULIN GLARGINE
  2. SOLOSTAR [Concomitant]
     Active Substance: DEVICE
  3. SOLOSTAR [Suspect]
     Active Substance: DEVICE
     Indication: TYPE 2 DIABETES MELLITUS
  4. HUMALOG [Concomitant]
     Active Substance: INSULIN LISPRO
  5. LANTUS SOLOSTAR [Suspect]
     Active Substance: INSULIN GLARGINE
     Indication: TYPE 2 DIABETES MELLITUS
     Dosage: SLIDING SCALE
     Route: 065
  6. LANTUS SOLOSTAR [Suspect]
     Active Substance: INSULIN GLARGINE
     Indication: TYPE 2 DIABETES MELLITUS
     Dosage: SLIDING SCALE
     Route: 065
  7. SOLOSTAR [Suspect]
     Active Substance: DEVICE
     Indication: TYPE 2 DIABETES MELLITUS

REACTIONS (8)
  - Back disorder [Unknown]
  - Blood glucose increased [Unknown]
  - Arthritis [Unknown]
  - Visual impairment [Unknown]
  - Ear disorder [Unknown]
  - Malaise [Unknown]
  - Device issue [Unknown]
  - Blood glucose decreased [Unknown]

NARRATIVE: CASE EVENT DATE: 2016
